FAERS Safety Report 15612686 (Version 3)
Quarter: 2019Q4

REPORT INFORMATION
  Report Type: Spontaneous
  Country: US (occurrence: US)
  Receive Date: 20181113
  Receipt Date: 20191002
  Transmission Date: 20200122
  Serious: Yes (Life-Threatening, Hospitalization, Disabling, Other)
  Sender: FDA-Public Use
  Company Number: US-JNJFOC-20181105191

PATIENT
  Age: 58 Year
  Sex: Male

DRUGS (10)
  1. VINCRISTINE [Concomitant]
     Active Substance: VINCRISTINE
  2. COENZYME Q10 [Concomitant]
     Active Substance: UBIDECARENONE
     Dosage: DAILY
     Route: 048
  3. HYDROCORTISONE. [Concomitant]
     Active Substance: HYDROCORTISONE
     Dosage: APPLY TO AFFECTED AREA TWICE DAILY
  4. PREDNISONE. [Suspect]
     Active Substance: PREDNISONE
     Indication: PRODUCT USED FOR UNKNOWN INDICATION
     Dosage: DAILY
     Route: 065
  5. VITAMIN C [Concomitant]
     Active Substance: ASCORBIC ACID
     Dosage: DAILY
     Route: 048
  6. IMBRUVICA [Suspect]
     Active Substance: IBRUTINIB
     Indication: WALDENSTROM^S MACROGLOBULINAEMIA
     Route: 065
     Dates: start: 20120528, end: 20161024
  7. CHOLECALCIFEROL [Concomitant]
     Active Substance: CHOLECALCIFEROL
     Dosage: 30 MG, DAILY
     Route: 048
  8. MULTIVITAMINS [Concomitant]
     Active Substance: VITAMINS
     Dosage: 1 TABLET DAILY
     Route: 048
  9. IMBRUVICA [Suspect]
     Active Substance: IBRUTINIB
     Route: 065
     Dates: start: 20161102
  10. PREDNISONE. [Suspect]
     Active Substance: PREDNISONE
     Dosage: DAILY
     Route: 065

REACTIONS (32)
  - Spinal cord oedema [Unknown]
  - Constipation [Unknown]
  - Pulmonary embolism [Recovered/Resolved]
  - Pyrexia [Recovered/Resolved]
  - Paralysis [Recovering/Resolving]
  - Alanine aminotransferase increased [Recovered/Resolved]
  - Renal cyst [Unknown]
  - Defaecation urgency [Unknown]
  - Demyelinating polyneuropathy [Unknown]
  - Vitamin B1 deficiency [Unknown]
  - Melanocytic naevus [Not Recovered/Not Resolved]
  - Peripheral sensorimotor neuropathy [Recovering/Resolving]
  - Anal incontinence [Unknown]
  - Gait inability [Unknown]
  - Confusional state [Recovering/Resolving]
  - Fall [Unknown]
  - Malaise [Recovered/Resolved]
  - Paraparesis [Unknown]
  - Urinary hesitation [Unknown]
  - Blood alkaline phosphatase increased [Recovered/Resolved]
  - Aspartate aminotransferase increased [Recovered/Resolved]
  - Urinary incontinence [Unknown]
  - Ataxia [Recovering/Resolving]
  - Blood bilirubin increased [Recovered/Resolved]
  - Fatigue [Unknown]
  - Organ failure [Recovered/Resolved]
  - Agitation [Unknown]
  - Oedema peripheral [Unknown]
  - Asthenia [Unknown]
  - Skin lesion [Not Recovered/Not Resolved]
  - Colonoscopy [Unknown]
  - Rash [Unknown]

NARRATIVE: CASE EVENT DATE: 201505
